FAERS Safety Report 4286051-9 (Version None)
Quarter: 2004Q1

REPORT INFORMATION
  Report Type: 
  Country: None (occurrence: None)
  Receive Date: 20040202
  Receipt Date: 20040121
  Transmission Date: 20041129
  Serious: Yes (Hospitalization)
  Sender: FDA-Public Use
  Company Number: FR-JNJFOC-20040103495

PATIENT
  Age: 28 Year
  Sex: Male
  Weight: 65 kg

DRUGS (4)
  1. REMICADE [Suspect]
     Indication: ANKYLOSING SPONDYLITIS
     Dosage: 315 MG, INTRAVENOUS
     Route: 042
     Dates: start: 20031020, end: 20040107
  2. FLURBIPROFEN [Concomitant]
  3. TRAMADOL HCL [Concomitant]
  4. OMEPRAZOLE [Concomitant]

REACTIONS (6)
  - ANKYLOSING SPONDYLITIS [None]
  - ARTHRALGIA [None]
  - DISEASE PROGRESSION [None]
  - INFLAMMATION [None]
  - POLYARTHRITIS [None]
  - TACHYPHYLAXIS [None]
